FAERS Safety Report 9386130 (Version 1)
Quarter: 2013Q3

REPORT INFORMATION
  Report Type: Spontaneous
  Country: US (occurrence: US)
  Receive Date: 20130707
  Receipt Date: 20130707
  Transmission Date: 20140515
  Serious: No
  Sender: FDA-Public Use
  Company Number: US-ALLERGAN-1304811US

PATIENT
  Age: 71 Year
  Sex: Female

DRUGS (6)
  1. COMBIGAN[R] [Suspect]
     Indication: GLAUCOMA
     Dosage: 1 GTT, BID
     Route: 047
  2. LUMIGAN? 0.01% [Suspect]
     Indication: GLAUCOMA
     Dosage: 1 GTT, UNK
     Route: 047
     Dates: start: 2012
  3. DILTIAZEM [Concomitant]
     Indication: HYPERTENSION
     Dosage: UNK
  4. LOSARTAN [Concomitant]
     Indication: HYPERTENSION
     Dosage: UNK
  5. PROVENTIL                          /00139501/ [Concomitant]
     Indication: ASTHMA
     Dosage: UNK UNK, PRN
     Route: 055
  6. FLOVENT [Concomitant]
     Indication: ASTHMA
     Dosage: UNK UNK, BID
     Route: 055

REACTIONS (7)
  - Skin ulcer [Recovering/Resolving]
  - Iris disorder [Recovering/Resolving]
  - Impaired healing [Recovering/Resolving]
  - Ulcer haemorrhage [Recovering/Resolving]
  - Eye irritation [Recovering/Resolving]
  - Ocular hyperaemia [Recovering/Resolving]
  - Eyelids pruritus [Recovering/Resolving]
